FAERS Safety Report 10449432 (Version 1)
Quarter: 2014Q3

REPORT INFORMATION
  Report Type: Spontaneous
  Country: US (occurrence: AR)
  Receive Date: 20140912
  Receipt Date: 20140912
  Transmission Date: 20150326
  Serious: Yes (Death, Hospitalization)
  Sender: FDA-Public Use
  Company Number: AR-B.I. PHARMACEUTICALS,INC./RIDGEFIELD-2014-BI-42338GD

PATIENT
  Age: 44 Year
  Sex: Female

DRUGS (4)
  1. LAMIVUDINE. [Suspect]
     Active Substance: LAMIVUDINE
     Indication: HIV INFECTION
     Route: 065
  2. NEVIRAPINE. [Suspect]
     Active Substance: NEVIRAPINE
     Indication: HIV INFECTION
     Route: 065
  3. ABACAVIR [Suspect]
     Active Substance: ABACAVIR
     Indication: HIV INFECTION
     Route: 065
  4. NSAIDS [Concomitant]
     Active Substance: UNSPECIFIED INGREDIENT
     Indication: PAIN IN EXTREMITY
     Route: 065

REACTIONS (9)
  - Histoplasmosis [Unknown]
  - Pain in extremity [Unknown]
  - Abasia [Unknown]
  - Lymphadenopathy [Unknown]
  - Osteopenia [Unknown]
  - Immune reconstitution inflammatory syndrome [Unknown]
  - Septic shock [Fatal]
  - Peripheral swelling [Unknown]
  - Osteomyelitis fungal [Unknown]
